FAERS Safety Report 5813945-2 (Version None)
Quarter: 2008Q3

REPORT INFORMATION
  Report Type: 
  Country: None (occurrence: None)
  Receive Date: 20080715
  Receipt Date: 20080702
  Transmission Date: 20090109
  Serious: Yes (Hospitalization)
  Sender: FDA-Public Use
  Company Number: MIN-00348

PATIENT
  Age: 18 Year
  Sex: Female
  Weight: 32.659 kg

DRUGS (2)
  1. MINOCIN [Suspect]
     Indication: ACNE
     Dosage: 50 MG PO QD
     Route: 048
     Dates: start: 20040301, end: 20040601
  2. SERTRALINE HYDROCHLORIDE [Concomitant]

REACTIONS (9)
  - AMMONIA INCREASED [None]
  - BLOOD CHLORIDE INCREASED [None]
  - CEREBRAL CYST [None]
  - CHEST DISCOMFORT [None]
  - DEAFNESS NEUROSENSORY [None]
  - HEART RATE INCREASED [None]
  - LACTIC ACIDOSIS [None]
  - MIGRAINE [None]
  - PRESYNCOPE [None]
